FAERS Safety Report 9629431 (Version 1)
Quarter: 2013Q4

REPORT INFORMATION
  Report Type: Spontaneous
  Country: US (occurrence: US)
  Receive Date: 20131017
  Receipt Date: 20131017
  Transmission Date: 20140711
  Serious: No
  Sender: FDA-Public Use
  Company Number: US-ASTRAZENECA-2013SE55101

PATIENT
  Age: 63 Year
  Sex: Female
  Weight: 68 kg

DRUGS (1)
  1. CRESTOR [Suspect]
     Route: 048
     Dates: start: 2003, end: 201307

REACTIONS (6)
  - Skin exfoliation [Unknown]
  - Hernia pain [Unknown]
  - Scar [Unknown]
  - Hepatic steatosis [Unknown]
  - Abdominal pain [Recovering/Resolving]
  - Pruritus [Recovering/Resolving]
